FAERS Safety Report 12979150 (Version 4)
Quarter: 2017Q1

REPORT INFORMATION
  Report Type: Spontaneous
  Country: JP (occurrence: JP)
  Receive Date: 20161128
  Receipt Date: 20170131
  Transmission Date: 20170428
  Serious: Yes (Life-Threatening, Other)
  Sender: FDA-Public Use
  Company Number: JP-GLAXOSMITHKLINE-JP2016JPN169898

PATIENT
  Age: 82 Year
  Sex: Female
  Weight: 25 kg

DRUGS (4)
  1. RISPERIDONE. [Suspect]
     Active Substance: RISPERIDONE
     Indication: RESTLESSNESS
     Dosage: 0.5 MG, UNK
     Route: 048
     Dates: start: 20160817, end: 20161109
  2. SHINLUCK [Concomitant]
     Active Substance: SODIUM PICOSULFATE
     Dosage: UNK
  3. FUROSEMIDE. [Suspect]
     Active Substance: FUROSEMIDE
     Indication: URINE OUTPUT DECREASED
     Dosage: 20 MG, UNK
     Route: 048
     Dates: start: 20151205, end: 20161109
  4. ZANTAC [Suspect]
     Active Substance: RANITIDINE HYDROCHLORIDE
     Indication: GASTROINTESTINAL HAEMORRHAGE
     Dosage: 100 MG, UNK
     Route: 042
     Dates: start: 20151118, end: 20161109

REACTIONS (6)
  - Anaemia [Unknown]
  - Infection [Not Recovered/Not Resolved]
  - Pancytopenia [Recovering/Resolving]
  - Thrombocytopenia [Recovering/Resolving]
  - C-reactive protein increased [Recovering/Resolving]
  - Neutropenia [Recovering/Resolving]

NARRATIVE: CASE EVENT DATE: 20161108
